FAERS Safety Report 5963478-8 (Version None)
Quarter: 2008Q4

REPORT INFORMATION
  Report Type: 
  Country: None (occurrence: None)
  Receive Date: 20081121
  Receipt Date: 20081121
  Transmission Date: 20090506
  Serious: Yes (Hospitalization)
  Sender: FDA-Public Use
  Company Number: None

PATIENT
  Sex: Female
  Weight: 87.0906 kg

DRUGS (1)
  1. LEVAQUIN [Suspect]
     Indication: SINUSITIS
     Dosage: 1 TABLET 1X DAILY PO
     Route: 048
     Dates: start: 20081115, end: 20081117

REACTIONS (15)
  - ASTHENIA [None]
  - DIARRHOEA [None]
  - DISTURBANCE IN ATTENTION [None]
  - DIZZINESS [None]
  - FEELING ABNORMAL [None]
  - FEELING HOT [None]
  - HEADACHE [None]
  - NAUSEA [None]
  - PARAESTHESIA [None]
  - PRURITUS [None]
  - RETCHING [None]
  - TREMOR [None]
  - URTICARIA [None]
  - VERTIGO [None]
  - VOMITING [None]
